FAERS Safety Report 6596702-1 (Version None)
Quarter: 2010Q1

REPORT INFORMATION
  Report Type: 
  Country: None (occurrence: None)
  Receive Date: 20100223
  Receipt Date: 20100115
  Transmission Date: 20100710
  Serious: Yes (Death)
  Sender: FDA-Public Use
  Company Number: JP-EISAI INC.-E2020-05511-CLI-JP

PATIENT
  Sex: Male
  Weight: 68.5 kg

DRUGS (1)
  1. ARICEPT [Suspect]
     Indication: DEMENTIA WITH LEWY BODIES
     Route: 048
     Dates: start: 20091103, end: 20091107

REACTIONS (1)
  - MYOCARDIAL INFARCTION [None]
